FAERS Safety Report 8612809-9 (Version None)
Quarter: 2012Q3

REPORT INFORMATION
  Report Type: 
  Country: None (occurrence: None)
  Receive Date: 20120822
  Receipt Date: 20111107
  Transmission Date: 20120928
  Serious: No
  Sender: FDA-Public Use
  Company Number: US-ASTRAZENECA-2010SE31508

PATIENT
  Age: 75 Year
  Sex: Female
  Weight: 110.2 kg

DRUGS (11)
  1. NEXIUM [Suspect]
     Indication: GASTROOESOPHAGEAL REFLUX DISEASE
     Route: 048
     Dates: start: 20040101
  2. COZAAR [Concomitant]
  3. LASIX [Concomitant]
  4. HYDOROCODONE [Concomitant]
  5. PROVENTIL [Concomitant]
  6. SINGULAIR [Concomitant]
  7. SYMBICORT [Suspect]
     Indication: ASTHMA
     Dosage: 160 MCG BID
     Route: 055
     Dates: start: 20070101
  8. METOPROLOL TARTRATE [Concomitant]
  9. AMLODIPINE [Concomitant]
  10. ALLOPURINOL [Concomitant]
  11. SYNTHROID [Concomitant]

REACTIONS (1)
  - MEMORY IMPAIRMENT [None]
